FAERS Safety Report 19510127 (Version 2)
Quarter: 2024Q4

REPORT INFORMATION
  Report Type: Report from Study
  Country: FR (occurrence: FR)
  Receive Date: 20210709
  Receipt Date: 20241002
  Transmission Date: 20250114
  Serious: Yes (Death, Other)
  Sender: ABBVIE
  Company Number: FR-CELLTRION HEALTHCARE HUNGARY KFT-2020FR021119

PATIENT
  Age: 80 Year
  Sex: Female
  Weight: 60 kg

DRUGS (33)
  1. VENETOCLAX [Suspect]
     Active Substance: VENETOCLAX
     Indication: Chronic lymphocytic leukaemia
     Route: 048
     Dates: start: 20200916, end: 20210210
  2. VENETOCLAX [Suspect]
     Active Substance: VENETOCLAX
     Indication: Chronic lymphocytic leukaemia
     Route: 048
     Dates: start: 20191224, end: 20191230
  3. VENETOCLAX [Suspect]
     Active Substance: VENETOCLAX
     Indication: Chronic lymphocytic leukaemia
     Route: 048
     Dates: start: 20191231, end: 20200106
  4. VENETOCLAX [Suspect]
     Active Substance: VENETOCLAX
     Indication: Chronic lymphocytic leukaemia
     Route: 048
     Dates: start: 20200107, end: 20200915
  5. VENETOCLAX [Suspect]
     Active Substance: VENETOCLAX
     Indication: Chronic lymphocytic leukaemia
     Route: 048
     Dates: start: 20191210, end: 20191216
  6. VENETOCLAX [Suspect]
     Active Substance: VENETOCLAX
     Indication: Chronic lymphocytic leukaemia
     Route: 048
     Dates: start: 20191217, end: 20191223
  7. RITUXIMAB [Suspect]
     Active Substance: RITUXIMAB
     Indication: Chronic lymphocytic leukaemia
     Route: 065
     Dates: start: 20200122, end: 202009
  8. ZOPICLONE [Concomitant]
     Active Substance: ZOPICLONE
     Indication: Prophylaxis
     Dates: start: 20191217, end: 20191217
  9. ZOPICLONE [Concomitant]
     Active Substance: ZOPICLONE
     Indication: Prophylaxis
     Dates: start: 20191210, end: 20191210
  10. ZOPICLONE [Concomitant]
     Active Substance: ZOPICLONE
     Indication: Prophylaxis
     Dates: start: 20191230, end: 20191230
  11. LORATADINE [Concomitant]
     Active Substance: LORATADINE
     Indication: Allergy prophylaxis
     Dates: start: 20200122, end: 20200122
  12. FASTURTEC [Concomitant]
     Active Substance: RASBURICASE
     Indication: Hyperuricaemia
     Dates: start: 20191223, end: 20191223
  13. DIGOXIN [Concomitant]
     Active Substance: DIGOXIN
     Indication: Atrial fibrillation
  14. DIGOXIN [Concomitant]
     Active Substance: DIGOXIN
     Indication: Atrial fibrillation
     Dates: start: 2013
  15. FUROSEMIDE [Concomitant]
     Active Substance: FUROSEMIDE
     Indication: Pulmonary arterial hypertension
     Dates: start: 2019
  16. CHOLECALCIFEROL [Concomitant]
     Active Substance: CHOLECALCIFEROL
     Indication: Vitamin supplementation
     Dates: start: 2019
  17. EFFEXOR [Concomitant]
     Active Substance: VENLAFAXINE HYDROCHLORIDE
     Indication: Depression
     Dates: start: 2019
  18. ACETAMINOPHEN [Concomitant]
     Active Substance: ACETAMINOPHEN
     Indication: Osteoarthritis
     Dates: start: 2013
  19. SPASFON [Concomitant]
     Indication: Gastrointestinal disorder prophylaxis
     Dates: start: 20191217
  20. LEUCOVORIN CALCIUM [Concomitant]
     Active Substance: LEUCOVORIN CALCIUM
     Indication: Anaemia prophylaxis
     Dates: start: 20200123
  21. MINERAL OIL [Concomitant]
     Active Substance: MINERAL OIL
     Indication: Constipation prophylaxis
     Dates: start: 20200219
  22. BISOPROLOL [Concomitant]
     Active Substance: BISOPROLOL\BISOPROLOL FUMARATE
     Indication: Atrial fibrillation
  23. BISOPROLOL [Concomitant]
     Active Substance: BISOPROLOL\BISOPROLOL FUMARATE
     Indication: Atrial fibrillation
     Dates: start: 2013
  24. REFRESH CELLUVISC [Concomitant]
     Active Substance: CARBOXYMETHYLCELLULOSE SODIUM
     Indication: Prophylaxis
     Dates: start: 20200123
  25. VALACYCLOVIR [Concomitant]
     Active Substance: VALACYCLOVIR HYDROCHLORIDE
     Indication: Infection prophylaxis
     Dates: start: 20200122
  26. ESOMEPRAZOLE [Concomitant]
     Active Substance: ESOMEPRAZOLE
     Indication: Prophylaxis
     Dates: start: 2013
  27. WARFARIN SODIUM [Concomitant]
     Active Substance: WARFARIN SODIUM
     Indication: Arrhythmia
  28. WARFARIN SODIUM [Concomitant]
     Active Substance: WARFARIN SODIUM
     Indication: Arrhythmia
     Dates: start: 2013
  29. MOVICOL [Concomitant]
     Active Substance: POLYETHYLENE GLYCOL 3350\POTASSIUM CHLORIDE\SODIUM BICARBONATE\SODIUM CHLORIDE
     Indication: Constipation prophylaxis
     Dates: start: 20200219
  30. ALLOPURINOL [Concomitant]
     Active Substance: ALLOPURINOL
     Indication: Prophylaxis
     Dates: start: 20191224
  31. METHYLPREDNISOLONE [Concomitant]
     Active Substance: METHYLPREDNISOLONE
     Indication: Allergy prophylaxis
     Dates: start: 20200122, end: 20200122
  32. BACTRIM [Concomitant]
     Active Substance: SULFAMETHOXAZOLE\TRIMETHOPRIM
     Indication: Infection prophylaxis
     Dates: start: 20200123
  33. SIMVASTATIN [Concomitant]
     Active Substance: SIMVASTATIN
     Indication: Hypertension
     Dates: start: 2013

REACTIONS (18)
  - COVID-19 [Fatal]
  - Lung disorder [Fatal]
  - Hyperuricaemia [Recovered/Resolved]
  - Peripheral venous disease [Unknown]
  - Drug hypersensitivity [Recovered/Resolved]
  - Alveolar lung disease [Unknown]
  - Cytopenia [Unknown]
  - Oedema peripheral [Recovered/Resolved]
  - Haematoma [Unknown]
  - Hyperuricaemia [Recovered/Resolved]
  - Pain [Unknown]
  - Pain [Recovered/Resolved]
  - Hyperuricaemia [Recovered/Resolved]
  - Asthenia [Unknown]
  - Neutropenia [Recovered/Resolved]
  - Neutropenia [Recovered/Resolved]
  - Diarrhoea [Unknown]
  - Lung disorder [Unknown]

NARRATIVE: CASE EVENT DATE: 20191201
